FAERS Safety Report 7369739-2 (Version None)
Quarter: 2011Q1

REPORT INFORMATION
  Report Type: 
  Country: None (occurrence: None)
  Receive Date: 20110323
  Receipt Date: 20110216
  Transmission Date: 20110831
  Serious: Yes (Death, Hospitalization)
  Sender: FDA-Public Use
  Company Number: JP-BAYER-200910009BYL

PATIENT
  Age: 36 Year
  Sex: Male
  Weight: 61 kg

DRUGS (1)
  1. NEXAVAR [Suspect]
     Indication: RENAL CELL CARCINOMA
     Dosage: 800 MG (DAILY DOSE), , ORAL
     Route: 048
     Dates: start: 20080421, end: 20081113

REACTIONS (3)
  - DIARRHOEA [None]
  - GLUCOSE TOLERANCE IMPAIRED [None]
  - RENAL CELL CARCINOMA [None]
